FAERS Safety Report 21206604 (Version 1)
Quarter: 2022Q3

REPORT INFORMATION
  Report Type: Spontaneous
  Country: RU (occurrence: RU)
  Receive Date: 20220812
  Receipt Date: 20220812
  Transmission Date: 20221027
  Serious: Yes (Other)
  Sender: FDA-Public Use
  Company Number: RU-UCBSA-2022042772

PATIENT
  Age: 12 Year

DRUGS (2)
  1. KEPPRA [Suspect]
     Active Substance: LEVETIRACETAM
     Indication: Benign rolandic epilepsy
     Dosage: UNK
  2. SULTHIAME [Concomitant]
     Active Substance: SULTHIAME
     Indication: Product used for unknown indication

REACTIONS (3)
  - Anxiety [Unknown]
  - Chorea [Unknown]
  - Product use in unapproved indication [Unknown]
